FAERS Safety Report 21845134 (Version 1)
Quarter: 2023Q1

REPORT INFORMATION
  Report Type: Spontaneous
  Country: US (occurrence: None)
  Receive Date: 20230110
  Receipt Date: 20230110
  Transmission Date: 20230418
  Serious: No
  Sender: FDA-Public Use
  Company Number: 2023A005275

PATIENT
  Sex: Female
  Weight: 77.1 kg

DRUGS (2)
  1. FARXIGA [Suspect]
     Active Substance: DAPAGLIFLOZIN PROPANEDIOL
     Indication: Diabetes mellitus
     Route: 048
  2. FARXIGA [Suspect]
     Active Substance: DAPAGLIFLOZIN PROPANEDIOL
     Indication: Diabetes mellitus
     Route: 048

REACTIONS (6)
  - Pollakiuria [Unknown]
  - Abdominal discomfort [Unknown]
  - Drug intolerance [Unknown]
  - Hunger [Unknown]
  - Hypertension [Unknown]
  - Thirst [Unknown]
